FAERS Safety Report 17968182 (Version 1)
Quarter: 2020Q3

REPORT INFORMATION
  Report Type: Spontaneous
  Country: GB (occurrence: GB)
  Receive Date: 20200701
  Receipt Date: 20200701
  Transmission Date: 20201103
  Serious: Yes (Hospitalization, Other)
  Sender: FDA-Public Use
  Company Number: GB-PFIZER INC-2020249362

PATIENT
  Age: 76 Year
  Sex: Male
  Weight: 74 kg

DRUGS (6)
  1. SULFASALAZINE. [Suspect]
     Active Substance: SULFASALAZINE
     Dosage: ONE DAILY FOR ONE WEEK THEN INCREASE BY ONE PER WEEK UNTIL ON TOTAL FOUR TABLETS DAILY
     Route: 048
     Dates: start: 20200512, end: 20200602
  2. BENZYLPENICILLIN [Concomitant]
     Active Substance: PENICILLIN G
     Dosage: 600 MG
     Dates: start: 20200603
  3. PARACETAMOL [Concomitant]
     Active Substance: ACETAMINOPHEN
     Indication: PAIN
     Dosage: 8 DF, 1X/DAY
     Dates: start: 20200415
  4. OMEPRAZOLE. [Concomitant]
     Active Substance: OMEPRAZOLE
     Dosage: 20 MG, 1X/DAY
     Dates: start: 20200319
  5. PREDNISOLONE. [Concomitant]
     Active Substance: PREDNISOLONE
     Dosage: TAKE FOUR DAILY (10MG) FOR 2 WEEKS THEN REDUCE BY ONE PER WEEK UNTIL STOPPED
     Dates: start: 20200512
  6. METFORMIN [Concomitant]
     Active Substance: METFORMIN HYDROCHLORIDE
     Dosage: 4 DF, 1X/DAY
     Dates: start: 20200319

REACTIONS (1)
  - Sepsis [Recovered/Resolved]

NARRATIVE: CASE EVENT DATE: 20200602
